FAERS Safety Report 5353071-2 (Version None)
Quarter: 2007Q2

REPORT INFORMATION
  Report Type: 
  Country: None (occurrence: None)
  Receive Date: 20070611
  Receipt Date: 20070530
  Transmission Date: 20071010
  Serious: Yes (Other)
  Sender: FDA-Public Use
  Company Number: DE-PFIZER INC-2007044929

PATIENT
  Sex: Female

DRUGS (2)
  1. SYNAREL [Suspect]
     Indication: IN VITRO FERTILISATION
     Dosage: FREQ:1ST CYCLE
     Route: 045
     Dates: start: 20061101, end: 20061201
  2. SYNAREL [Suspect]
     Dosage: FREQ:2ND CYCLE
     Route: 045

REACTIONS (3)
  - ABORTION SPONTANEOUS [None]
  - DRUG EXPOSURE DURING PREGNANCY [None]
  - NEURODERMATITIS [None]
